FAERS Safety Report 23545488 (Version 3)
Quarter: 2024Q2

REPORT INFORMATION
  Report Type: Spontaneous
  Country: CA (occurrence: CA)
  Receive Date: 20240220
  Receipt Date: 20240402
  Transmission Date: 20240716
  Serious: Yes (Hospitalization, Other)
  Sender: FDA-Public Use
  Company Number: CA-PFIZER INC-202300175637

PATIENT
  Age: 54 Year
  Sex: Female
  Weight: 72 kg

DRUGS (19)
  1. RUXIENCE [Suspect]
     Active Substance: RITUXIMAB-PVVR
     Indication: Granulomatosis with polyangiitis
     Dosage: 675 MG, WEEKLY X 4 WEEKS
     Route: 042
     Dates: start: 20230427, end: 20230427
  2. RUXIENCE [Suspect]
     Active Substance: RITUXIMAB-PVVR
     Dosage: 675 MG, WEEKLY X 4 WEEKS
     Route: 042
     Dates: start: 20230427, end: 20230518
  3. RUXIENCE [Suspect]
     Active Substance: RITUXIMAB-PVVR
     Dosage: 675 MG, WEEKLY X 4 WEEKS
     Route: 042
     Dates: start: 20230504
  4. RUXIENCE [Suspect]
     Active Substance: RITUXIMAB-PVVR
     Dosage: 675 MG, WEEKLY X 4 WEEKS
     Route: 042
     Dates: start: 20230504
  5. RUXIENCE [Suspect]
     Active Substance: RITUXIMAB-PVVR
     Dosage: 675 MG, WEEKLY X 4 WEEKS
     Route: 042
     Dates: start: 20230512
  6. RUXIENCE [Suspect]
     Active Substance: RITUXIMAB-PVVR
     Dosage: 675 MG, WEEKLY X 4 WEEKS
     Route: 042
     Dates: start: 20230512
  7. RUXIENCE [Suspect]
     Active Substance: RITUXIMAB-PVVR
     Dosage: 675 MG, WEEKLY X 4 WEEKS
     Route: 042
     Dates: start: 20230518
  8. RUXIENCE [Suspect]
     Active Substance: RITUXIMAB-PVVR
     Dosage: 675 MG, WEEKLY X 4 WEEKS
     Route: 042
     Dates: start: 20230518
  9. RUXIENCE [Suspect]
     Active Substance: RITUXIMAB-PVVR
     Dosage: 500 MG, DAY 1 AND DAY 15, THEN 1 DOSE EVERY 6 MONTHS (AFTER 22 WEEKS)
     Route: 042
     Dates: start: 20231019
  10. RUXIENCE [Suspect]
     Active Substance: RITUXIMAB-PVVR
     Dosage: 500 MG, DAY 1 AND DAY 15, THEN 1 DOSE EVERY 6 MONTHS
     Route: 042
     Dates: start: 20231102
  11. RUXIENCE [Suspect]
     Active Substance: RITUXIMAB-PVVR
     Dosage: 500 MG, DAY 1 AND DAY 15, THEN 1 DOSE EVERY 6 MONTHS (AFTER 14 WEEKS AND 6 DAYS)
     Route: 042
     Dates: start: 20240214
  12. RUXIENCE [Suspect]
     Active Substance: RITUXIMAB-PVVR
     Dosage: 500 MG, DAY 1 AND DAY 15, THEN 1 DOSE EVERY 6 MONTHS (500MG AFTER 2 WEEKS)
     Route: 042
     Dates: start: 20240228
  13. ALENDRONATE [Concomitant]
     Active Substance: ALENDRONATE SODIUM
     Dosage: 70 MG
  14. ESTRADIOL [Concomitant]
     Active Substance: ESTRADIOL
     Dosage: 37.5 MG
  15. LACTASE [Concomitant]
     Active Substance: LACTASE
     Dosage: 13.5 IU
  16. PANTOPRAZOLE [Concomitant]
     Active Substance: PANTOPRAZOLE
     Dosage: 40 MG
  17. PREDNISONE [Concomitant]
     Active Substance: PREDNISONE
     Dosage: 30 MG
  18. TAVNEOS [Concomitant]
     Active Substance: AVACOPAN
     Dosage: 30 MG
  19. ZOPICLONE [Concomitant]
     Active Substance: ZOPICLONE
     Dosage: 5.5 MG

REACTIONS (5)
  - Tracheal obstruction [Recovering/Resolving]
  - Nausea [Unknown]
  - Off label use [Unknown]
  - Off label use [Unknown]
  - Intentional product use issue [Unknown]

NARRATIVE: CASE EVENT DATE: 20230427
